FAERS Safety Report 16997601 (Version 1)
Quarter: 2019Q4

REPORT INFORMATION
  Report Type: Spontaneous
  Country: US (occurrence: US)
  Receive Date: 20190924
  Receipt Date: 20190924
  Transmission Date: 20200122
  Serious: No
  Sender: FDA-Public Use
  Company Number: None

PATIENT

DRUGS (2)
  1. TRESIBA [Suspect]
     Active Substance: INSULIN DEGLUDEC
     Dosage: ?          OTHER STRENGTH:100/UNITS/ML;?
  2. TRESIBA [Suspect]
     Active Substance: INSULIN DEGLUDEC
     Dosage: ?          OTHER DOSE:200 UNITS/ML;?

REACTIONS (1)
  - Product dispensing error [None]

NARRATIVE: CASE EVENT DATE: 2019
